FAERS Safety Report 18127666 (Version 8)
Quarter: 2022Q3

REPORT INFORMATION
  Report Type: Report from Study
  Country: US (occurrence: US)
  Receive Date: 20200810
  Receipt Date: 20220815
  Transmission Date: 20221027
  Serious: Yes (Hospitalization)
  Sender: FDA-Public Use
  Company Number: US-NOVARTISPH-NVSC2020US221079

PATIENT
  Age: 0 Year
  Sex: Female
  Weight: 8 kg

DRUGS (1)
  1. ZOLGENSMA [Suspect]
     Active Substance: ONASEMNOGENE ABEPARVOVEC-XIOI
     Indication: Spinal muscular atrophy
     Dosage: 8.3 ML, ONCE/SINGLE (1.1 ? 1014 VECTOR GENOMES (VG) PER KG OF BODY WEIGHT) (8.3 ML VIAL X 5)
     Route: 042
     Dates: start: 20200604

REACTIONS (4)
  - Respiratory distress [Unknown]
  - Decreased appetite [Unknown]
  - Viral infection [Unknown]
  - Hepatic enzyme increased [Unknown]

NARRATIVE: CASE EVENT DATE: 20200915
